FAERS Safety Report 9602261 (Version 1)
Quarter: 2013Q4

REPORT INFORMATION
  Report Type: Report from Study
  Country: LB (occurrence: LB)
  Receive Date: 20131007
  Receipt Date: 20131007
  Transmission Date: 20140711
  Serious: Yes (Hospitalization)
  Sender: FDA-Public Use
  Company Number: LB-SA-2013SA096402

PATIENT
  Age: 60 Year
  Sex: Male

DRUGS (3)
  1. LANTUS SOLOSTAR [Suspect]
     Indication: DIABETES MELLITUS
     Dosage: DOSE:20 UNIT(S)
     Route: 058
  2. GLIBOMET [Concomitant]
     Indication: DIABETES MELLITUS
     Route: 048
  3. ASPICOT [Concomitant]
     Route: 048

REACTIONS (2)
  - Vertigo [Recovered/Resolved]
  - Drug ineffective [Unknown]
